FAERS Safety Report 13689186 (Version 1)
Quarter: 2017Q2

REPORT INFORMATION
  Report Type: Spontaneous
  Country: US (occurrence: US)
  Receive Date: 20170624
  Receipt Date: 20170624
  Transmission Date: 20170830
  Serious: Yes (Other)
  Sender: FDA-Public Use
  Company Number: None

PATIENT
  Age: 48 Year
  Sex: Female
  Weight: 51.75 kg

DRUGS (1)
  1. KLONOPIN [Suspect]
     Active Substance: CLONAZEPAM
     Indication: ANXIETY
     Dosage: ?          OTHER STRENGTH:MG;QUANTITY:120 TABLET(S);?EVERY 6 HOURS ORAL
     Route: 048
     Dates: start: 20020710, end: 20150720

REACTIONS (11)
  - Drug use disorder [None]
  - Amnesia [None]
  - Road traffic accident [None]
  - Feeling abnormal [None]
  - Job dissatisfaction [None]
  - Legal problem [None]
  - Loss of personal independence in daily activities [None]
  - Social problem [None]
  - Withdrawal syndrome [None]
  - Anger [None]
  - Antisocial behaviour [None]
